FAERS Safety Report 19642372 (Version 1)
Quarter: 2021Q3

REPORT INFORMATION
  Report Type: Spontaneous
  Country: US (occurrence: US)
  Receive Date: 20210730
  Receipt Date: 20210730
  Transmission Date: 20211014
  Serious: No
  Sender: FDA-Public Use
  Company Number: US-BAUSCH-BL-2021-023844

PATIENT
  Sex: Female

DRUGS (1)
  1. WELLBUTRIN XL [Suspect]
     Active Substance: BUPROPION HYDROCHLORIDE
     Indication: PRODUCT USED FOR UNKNOWN INDICATION
     Dosage: ON THE BRAND NAME FOR 10 YEARS
     Route: 065
     Dates: end: 2021

REACTIONS (5)
  - Dizziness [Not Recovered/Not Resolved]
  - Drug withdrawal headache [Not Recovered/Not Resolved]
  - Therapy interrupted [Unknown]
  - Inability to afford medication [Unknown]
  - Insurance issue [Unknown]

NARRATIVE: CASE EVENT DATE: 2021
